FAERS Safety Report 15325392 (Version 2)
Quarter: 2018Q3

REPORT INFORMATION
  Report Type: Spontaneous
  Country: US (occurrence: US)
  Receive Date: 20180828
  Receipt Date: 20180927
  Transmission Date: 20181010
  Serious: Yes (Other)
  Sender: FDA-Public Use
  Company Number: US-GLAXOSMITHKLINE-US2018151906

PATIENT
  Age: 42 Year
  Sex: Female
  Weight: 62.5 kg

DRUGS (1)
  1. MALARONE [Suspect]
     Active Substance: ATOVAQUONE\PROGUANIL HYDROCHLORIDE
     Indication: PRODUCT USED FOR UNKNOWN INDICATION
     Dosage: UNK, 1D
     Dates: start: 20180629, end: 20180728

REACTIONS (5)
  - Hepatitis [Recovering/Resolving]
  - Alanine aminotransferase increased [Recovering/Resolving]
  - Foreign travel [Unknown]
  - Fatigue [Unknown]
  - Aspartate aminotransferase increased [Recovering/Resolving]

NARRATIVE: CASE EVENT DATE: 20180720
